FAERS Safety Report 11729540 (Version 1)
Quarter: 2015Q4

REPORT INFORMATION
  Report Type: Spontaneous
  Country: US (occurrence: US)
  Receive Date: 20151110
  Receipt Date: 20151110
  Transmission Date: 20160304
  Serious: No
  Sender: FDA-Public Use
  Company Number: US-ELI_LILLY_AND_COMPANY-US201201001708

PATIENT
  Age: 90 Year
  Sex: Female

DRUGS (1)
  1. FORTEO [Suspect]
     Active Substance: TERIPARATIDE
     Indication: OSTEOPOROSIS
     Dosage: 20 UG, QD
     Dates: start: 20111221, end: 20120103

REACTIONS (7)
  - Communication disorder [Unknown]
  - Somnolence [Unknown]
  - Decreased activity [Unknown]
  - Confusional state [Unknown]
  - Thinking abnormal [Unknown]
  - Thirst [Unknown]
  - Tremor [Unknown]

NARRATIVE: CASE EVENT DATE: 20111230
